FAERS Safety Report 24634282 (Version 1)
Quarter: 2024Q4

REPORT INFORMATION
  Report Type: Spontaneous
  Country: US (occurrence: US)
  Receive Date: 20241119
  Receipt Date: 20241119
  Transmission Date: 20250115
  Serious: No
  Sender: STALLERGENES
  Company Number: US-STALCOR-2024-AER-02122

PATIENT
  Sex: Female

DRUGS (2)
  1. PALFORZIA [Suspect]
     Active Substance: PEANUT
     Indication: Food allergy
     Dosage: UP DOSING (DOSE LEVEL, DOSAGE NOT REPORTED)-SUSPECT DOSE
     Route: 048
     Dates: start: 20240823
  2. PALFORZIA [Suspect]
     Active Substance: PEANUT
     Dosage: INITIAL DOSE ESCALATION
     Route: 048
     Dates: start: 20240820

REACTIONS (1)
  - Vomiting [Unknown]
